FAERS Safety Report 4366846-3 (Version None)
Quarter: 2004Q2

REPORT INFORMATION
  Report Type: 
  Country: None (occurrence: None)
  Receive Date: 20040528
  Receipt Date: 20040203
  Transmission Date: 20050107
  Serious: No
  Sender: FDA-Public Use
  Company Number: US-GLAXOSMITHKLINE-A0496343A

PATIENT
  Age: 52 Year
  Sex: Male

DRUGS (3)
  1. BACTROBAN [Suspect]
     Indication: SKIN INFECTION
     Dosage: 15G TWICE PER DAY
     Route: 061
     Dates: start: 20040127, end: 20040202
  2. ANTIBIOTIC [Concomitant]
  3. SINUS MEDICINE [Concomitant]

REACTIONS (4)
  - ERYTHEMA [None]
  - HYPERSENSITIVITY [None]
  - PRURITUS [None]
  - SWELLING [None]
